FAERS Safety Report 11108530 (Version 1)
Quarter: 2015Q2

REPORT INFORMATION
  Report Type: Report from Study
  Country: BE (occurrence: BE)
  Receive Date: 20150513
  Receipt Date: 20150513
  Transmission Date: 20150821
  Serious: Yes (Other)
  Sender: FDA-Public Use
  Company Number: BE-MERCK-1505BEL002464

PATIENT

DRUGS (2)
  1. INTRON A [Suspect]
     Active Substance: INTERFERON ALFA-2B
     Indication: METASTATIC MALIGNANT MELANOMA
     Dosage: 5 MILLION UNITS, 3 TIMES PER WEEK
     Route: 058
  2. MRNA ELECTROPORATED AUTOLOGOUS DENDRITIC CELLS [Concomitant]
     Indication: METASTATIC MALIGNANT MELANOMA
     Dosage: TWO DIFFERENT INJECTION SITES (AXILLAR AND/OR INGUINAL REGION, 2 INJECTIONS AT EACH SITE), FOR A TOT
     Route: 023

REACTIONS (1)
  - General symptom [Unknown]
